FAERS Safety Report 10252555 (Version 1)
Quarter: 2014Q2

REPORT INFORMATION
  Report Type: Spontaneous
  Country: US (occurrence: None)
  Receive Date: 20140619
  Receipt Date: 20140619
  Transmission Date: 20141212
  Serious: Yes (Other)
  Sender: FDA-Public Use
  Company Number: A1076896A

PATIENT
  Age: 80 Year
  Sex: Female

DRUGS (1)
  1. METHYLCELLULOSE (FORMULATION UNKNOWN) (METHYLCELLULOSE) [Suspect]
     Dosage: 2 TABLESPOON/TWICE PER DAY/ORAL
     Route: 048

REACTIONS (4)
  - Gastrointestinal haemorrhage [None]
  - Gastrooesophageal reflux disease [None]
  - Drug ineffective [None]
  - Large intestine polyp [None]
